FAERS Safety Report 9553413 (Version 2)
Quarter: 2013Q4

REPORT INFORMATION
  Report Type: Spontaneous
  Country: BR (occurrence: BR)
  Receive Date: 20130925
  Receipt Date: 20131007
  Transmission Date: 20140711
  Serious: Yes (Death)
  Sender: FDA-Public Use
  Company Number: BR-ABBVIE-13P-020-1150914-00

PATIENT
  Sex: Male
  Weight: 89 kg

DRUGS (1)
  1. HUMIRA [Suspect]
     Indication: PSORIATIC ARTHROPATHY
     Dosage: RECEIVED ONLY 1 DOSE
     Route: 058
     Dates: start: 201306, end: 201306

REACTIONS (2)
  - Respiratory failure [Fatal]
  - Pneumonia [Fatal]
